FAERS Safety Report 9553651 (Version 1)
Quarter: 2013Q3

REPORT INFORMATION
  Report Type: Spontaneous
  Country: US (occurrence: None)
  Receive Date: 20130924
  Receipt Date: 20130924
  Transmission Date: 20140515
  Serious: Yes (Other)
  Sender: FDA-Public Use
  Company Number: None

PATIENT
  Age: 57 Year
  Sex: Female
  Weight: 59.88 kg

DRUGS (1)
  1. PROGESTERONE [Suspect]
     Dosage: 1 PILL ONCE DAILY TAKEN BY MOUTH
     Dates: start: 20130918, end: 20130922

REACTIONS (2)
  - Dizziness [None]
  - Feeling abnormal [None]
